FAERS Safety Report 12960664 (Version 1)
Quarter: 2016Q4

REPORT INFORMATION
  Report Type: Spontaneous
  Country: US (occurrence: US)
  Receive Date: 20161121
  Receipt Date: 20161121
  Transmission Date: 20170207
  Serious: No
  Sender: FDA-Public Use
  Company Number: US-OTSUKA-2016_010540

PATIENT
  Age: 25 Year
  Sex: Male

DRUGS (1)
  1. NUEDEXTA [Suspect]
     Active Substance: DEXTROMETHORPHAN HYDROBROMIDE\QUINIDINE SULFATE
     Indication: AFFECT LABILITY
     Dosage: 1 DF (20/10MG), QD
     Route: 065
     Dates: start: 201605, end: 201605

REACTIONS (2)
  - Drug dependence [Unknown]
  - Tremor [Unknown]

NARRATIVE: CASE EVENT DATE: 201605
